FAERS Safety Report 9659255 (Version 1)
Quarter: 2013Q4

REPORT INFORMATION
  Report Type: Spontaneous
  Country: CN (occurrence: CN)
  Receive Date: 20131031
  Receipt Date: 20131031
  Transmission Date: 20140711
  Serious: Yes (Disabling, Other)
  Sender: FDA-Public Use
  Company Number: CN-BRISTOL-MYERS SQUIBB COMPANY-19618859

PATIENT
  Sex: 0

DRUGS (1)
  1. ERBITUX SOLN FOR INF [Suspect]
     Indication: COLORECTAL CANCER
     Route: 041
     Dates: start: 2013, end: 2013

REACTIONS (2)
  - Deep vein thrombosis [Recovered/Resolved with Sequelae]
  - Monoplegia [Unknown]
